FAERS Safety Report 23028256 (Version 1)
Quarter: 2023Q4

REPORT INFORMATION
  Report Type: Spontaneous
  Country: US (occurrence: None)
  Receive Date: 20231004
  Receipt Date: 20231004
  Transmission Date: 20240110
  Serious: Yes (Hospitalization, Other)
  Sender: FDA-Public Use
  Company Number: None

PATIENT
  Age: 34 Year
  Sex: Male
  Weight: 81 kg

DRUGS (1)
  1. TIANEPTINE [Suspect]
     Active Substance: TIANEPTINE
     Dosage: 2880 MG DAILY ORAL?
     Route: 048
     Dates: start: 20230601, end: 20230930

REACTIONS (2)
  - Drug dependence [None]
  - Substance use disorder [None]

NARRATIVE: CASE EVENT DATE: 20230929
